FAERS Safety Report 5135655-X (Version None)
Quarter: 2006Q4

REPORT INFORMATION
  Report Type: 
  Country: None (occurrence: None)
  Receive Date: 20061026
  Receipt Date: 20061017
  Transmission Date: 20070319
  Serious: Yes (Hospitalization)
  Sender: FDA-Public Use
  Company Number: US-ROCHE-467859

PATIENT
  Age: 21 Year
  Sex: Female

DRUGS (2)
  1. ACCUTANE [Suspect]
     Dosage: STRENGTH REPORTED AS 40 MG.
     Route: 048
     Dates: start: 20060828, end: 20061013
  2. ACCUTANE [Suspect]
     Dosage: STRENGTH REPORTED AS 20 MG.
     Route: 048
     Dates: start: 20060727, end: 20060827

REACTIONS (1)
  - APPENDICITIS [None]
